FAERS Safety Report 22163373 (Version 5)
Quarter: 2023Q2

REPORT INFORMATION
  Report Type: Spontaneous
  Country: PT (occurrence: PT)
  Receive Date: 20230401
  Receipt Date: 20230528
  Transmission Date: 20230722
  Serious: Yes (Life-Threatening, Hospitalization, Other)
  Sender: FDA-Public Use
  Company Number: PT-002147023-NVSC2023PT063377

PATIENT
  Age: 50 Year
  Sex: Female
  Weight: 60 kg

DRUGS (16)
  1. ATORVASTATIN [Suspect]
     Active Substance: ATORVASTATIN
     Indication: Toxicity to various agents
     Dosage: 400 MILLIGRAM
     Route: 065
  2. ATORVASTATIN [Suspect]
     Active Substance: ATORVASTATIN
     Dosage: 40 MILLIGRAM
     Route: 065
  3. AMLODIPINE [Suspect]
     Active Substance: AMLODIPINE BESYLATE
     Indication: Toxicity to various agents
     Dosage: 140 MILLIGRAM
     Route: 065
  4. AMLODIPINE [Suspect]
     Active Substance: AMLODIPINE BESYLATE
     Dosage: 5 MILLIGRAM
     Route: 065
  5. SERTRALINE [Suspect]
     Active Substance: SERTRALINE HYDROCHLORIDE
     Indication: Toxicity to various agents
     Dosage: 1 GRAM, 1 TOTAL
     Route: 065
  6. SERTRALINE [Suspect]
     Active Substance: SERTRALINE HYDROCHLORIDE
     Dosage: 5 MILLIGRAM
     Route: 065
  7. TRAZODONE [Suspect]
     Active Substance: TRAZODONE HYDROCHLORIDE
     Indication: Toxicity to various agents
     Dosage: 2 GRAM, 1 TOTAL
     Route: 065
  8. TRAZODONE [Suspect]
     Active Substance: TRAZODONE HYDROCHLORIDE
     Dosage: 100 MILLIGRAM
     Route: 065
  9. ETHYL LOFLAZEPATE [Suspect]
     Active Substance: ETHYL LOFLAZEPATE
     Indication: Toxicity to various agents
     Dosage: 56 MILLIGRAM, 1 TOTAL
     Route: 065
  10. ETHYL LOFLAZEPATE [Suspect]
     Active Substance: ETHYL LOFLAZEPATE
     Dosage: 2 MILLIGRAM
     Route: 065
  11. IMIDAPRIL [Suspect]
     Active Substance: IMIDAPRIL
     Indication: Toxicity to various agents
     Dosage: 140 MILLIGRAM
     Route: 065
  12. IMIDAPRIL [Suspect]
     Active Substance: IMIDAPRIL
     Dosage: 5 MILLIGRAM
     Route: 065
  13. INSULIN NOS [Concomitant]
     Active Substance: INSULIN NOS
     Indication: Product used for unknown indication
     Dosage: MAXIMUM 50 U/H, CORRESPONDING TO 0.83 U/KG/H
     Route: 042
  14. DEXTROSE [Concomitant]
     Active Substance: DEXTROSE\DEXTROSE MONOHYDRATE
     Indication: Product used for unknown indication
     Dosage: UNK
     Route: 065
  15. POTASSIUM CHLORIDE [Concomitant]
     Active Substance: POTASSIUM CHLORIDE
     Indication: Supplementation therapy
     Dosage: UNK
     Route: 065
  16. CALCIUM CHLORIDE [Concomitant]
     Active Substance: CALCIUM CHLORIDE
     Indication: Supplementation therapy

REACTIONS (5)
  - Altered state of consciousness [Recovered/Resolved]
  - Toxicity to various agents [Recovered/Resolved]
  - Intentional overdose [Recovered/Resolved]
  - Hypoglycaemia [Recovered/Resolved]
  - Hypotension [Recovered/Resolved]
